FAERS Safety Report 13662621 (Version 1)
Quarter: 2017Q2

REPORT INFORMATION
  Report Type: Spontaneous
  Country: US (occurrence: US)
  Receive Date: 20170616
  Receipt Date: 20170616
  Transmission Date: 20170830
  Serious: Yes (Hospitalization)
  Sender: FDA-Public Use
  Company Number: None

PATIENT
  Age: 29 Year
  Sex: Female

DRUGS (7)
  1. ELBASVIR /GRAZOPREVIR [Suspect]
     Active Substance: ELBASVIR\GRAZOPREVIR
     Indication: HEPATITIS C
     Dosage: 50-100MG QD PO
     Route: 048
     Dates: start: 20170304
  2. TYLENOL [Concomitant]
     Active Substance: ACETAMINOPHEN
  3. AZELASTINE (ASTELIN) [Concomitant]
  4. ETONOGESTREL (IMPLANON, NEXPLANON) [Concomitant]
  5. AUGMENTIN [Concomitant]
     Active Substance: AMOXICILLIN\CLAVULANATE POTASSIUM
  6. MULTIVITAMIN WITH MINERALS [Concomitant]
     Active Substance: MINERALS\VITAMINS
  7. ONDANSETRON (ZOFRAN-ODT) [Concomitant]

REACTIONS (7)
  - Escherichia test positive [None]
  - Hypotension [None]
  - Pyelonephritis [None]
  - Hypokalaemia [None]
  - Urosepsis [None]
  - Treatment failure [None]
  - Tachycardia [None]

NARRATIVE: CASE EVENT DATE: 20170605
